FAERS Safety Report 6934643-8 (Version None)
Quarter: 2010Q3

REPORT INFORMATION
  Report Type: 
  Country: None (occurrence: None)
  Receive Date: 20100820
  Receipt Date: 20100810
  Transmission Date: 20110219
  Serious: Yes (Hospitalization, Other)
  Sender: FDA-Public Use
  Company Number: US-ABBOTT-10P-163-0663529-00

PATIENT
  Sex: Male
  Weight: 136.2 kg

DRUGS (14)
  1. HUMIRA [Suspect]
     Indication: COLITIS ULCERATIVE
     Dates: start: 20080301
  2. HUMIRA [Suspect]
     Indication: CROHN'S DISEASE
  3. OPIUM 10% TINCTURE [Concomitant]
     Indication: DIARRHOEA
     Dosage: 3 TIMES PER DAY AND 1 ML AT NIGHTNIGHT
  4. CLONAZEPAM [Concomitant]
     Indication: ANXIETY
  5. LEXAPRO [Concomitant]
     Indication: DEPRESSION
  6. DIAZEPAM [Concomitant]
     Indication: DEPRESSION
  7. SEROQUEL [Concomitant]
     Indication: INSOMNIA
  8. LOPERAMIDE [Concomitant]
     Indication: DIARRHOEA
     Dosage: 4 TIMES A DAY AS NEEDED
  9. DICYCLOMINE [Concomitant]
     Indication: MUSCLE SPASMS
  10. ACIPHEX [Concomitant]
     Indication: GASTROOESOPHAGEAL REFLUX DISEASE
  11. AMITRIPTYLINE HCL [Concomitant]
     Indication: PAIN
  12. FLONASE [Concomitant]
     Indication: NASAL CONGESTION
  13. ZYRTEC [Concomitant]
     Indication: HYPERSENSITIVITY
  14. UNKNOWN INTRAVENOUS FLUIDS [Concomitant]
     Indication: PRODUCT USED FOR UNKNOWN INDICATION
     Dates: start: 20081222, end: 20081224

REACTIONS (24)
  - AMNESIA [None]
  - BALANCE DISORDER [None]
  - DEHYDRATION [None]
  - DEPRESSION [None]
  - DEVICE DISLOCATION [None]
  - DIPLOPIA [None]
  - DYSPNOEA [None]
  - EPISTAXIS [None]
  - EYE MOVEMENT DISORDER [None]
  - EYE PAIN [None]
  - FACIAL BONES FRACTURE [None]
  - FALL [None]
  - FATIGUE [None]
  - INJECTION SITE NODULE [None]
  - MOBILITY DECREASED [None]
  - MYASTHENIA GRAVIS [None]
  - NAUSEA [None]
  - PAIN [None]
  - PHOTOPHOBIA [None]
  - SCAR PAIN [None]
  - SPUTUM INCREASED [None]
  - TRAUMATIC BRAIN INJURY [None]
  - UPPER LIMB FRACTURE [None]
  - VASCULAR RUPTURE [None]
